FAERS Safety Report 11593374 (Version 2)
Quarter: 2019Q3

REPORT INFORMATION
  Report Type: Spontaneous
  Country: US (occurrence: US)
  Receive Date: 20151005
  Receipt Date: 20190703
  Transmission Date: 20191004
  Serious: Yes (Other)
  Sender: FDA-Public Use
  Company Number: US-SA-2015SA149364

PATIENT
  Age: 86 Year
  Sex: Female

DRUGS (1)
  1. LANTUS SOLOSTAR [Suspect]
     Active Substance: INSULIN GLARGINE
     Indication: TYPE 2 DIABETES MELLITUS
     Dosage: 25UNITS AT AM AND 18UNITS AT PM,BID
     Route: 065
     Dates: start: 2012

REACTIONS (7)
  - Nerve compression [Unknown]
  - General physical health deterioration [Unknown]
  - Blood glucose increased [Unknown]
  - Eye operation [Unknown]
  - Spinal disorder [Unknown]
  - Wrong technique in product usage process [Unknown]
  - Inappropriate schedule of product administration [Unknown]

NARRATIVE: CASE EVENT DATE: 2012
